FAERS Safety Report 11773987 (Version 1)
Quarter: 2015Q4

REPORT INFORMATION
  Report Type: Spontaneous
  Country: GB (occurrence: GB)
  Receive Date: 20151124
  Receipt Date: 20151124
  Transmission Date: 20160304
  Serious: Yes (Death, Other)
  Sender: FDA-Public Use
  Company Number: GB-TEVA-609679ACC

PATIENT
  Age: 67 Year
  Sex: Female

DRUGS (1)
  1. PREDNISOLONE. [Suspect]
     Active Substance: PREDNISOLONE
     Indication: CROHN^S DISEASE
     Route: 048

REACTIONS (3)
  - Immunosuppression [Not Recovered/Not Resolved]
  - Necrotising fasciitis [Fatal]
  - Sepsis [Fatal]
